FAERS Safety Report 14211110 (Version 1)
Quarter: 2017Q4

REPORT INFORMATION
  Report Type: Spontaneous
  Country: US (occurrence: US)
  Receive Date: 20171121
  Receipt Date: 20171121
  Transmission Date: 20180321
  Serious: Yes (Hospitalization)
  Sender: FDA-Public Use
  Company Number: US-GE HEALTHCARE LIFE SCIENCES-2017CSU003721

PATIENT
  Age: 34 Year
  Sex: Male

DRUGS (1)
  1. OMNIPAQUE [Suspect]
     Active Substance: IOHEXOL
     Indication: MEDIASTINAL DISORDER
     Dosage: UNK UNK, SINGLE
     Route: 042

REACTIONS (2)
  - Hyperthyroidism [Unknown]
  - Cardiogenic shock [Unknown]
